FAERS Safety Report 5946483-7 (Version None)
Quarter: 2008Q4

REPORT INFORMATION
  Report Type: 
  Country: None (occurrence: None)
  Receive Date: 20081110
  Receipt Date: 20081106
  Transmission Date: 20090506
  Serious: Yes (Life-Threatening, Hospitalization, Disabling)
  Sender: FDA-Public Use
  Company Number: A0755196A

PATIENT
  Age: 69 Year
  Sex: Male

DRUGS (4)
  1. AVODART [Suspect]
     Indication: BENIGN PROSTATIC HYPERPLASIA
     Route: 048
     Dates: start: 20080916, end: 20081001
  2. TIMOLOL [Concomitant]
     Indication: DRUG USE FOR UNKNOWN INDICATION
  3. CRESTOR [Concomitant]
     Indication: DRUG USE FOR UNKNOWN INDICATION
     Route: 048
  4. ASPIRIN [Concomitant]
     Indication: DRUG USE FOR UNKNOWN INDICATION

REACTIONS (1)
  - IDIOPATHIC THROMBOCYTOPENIC PURPURA [None]
